FAERS Safety Report 20215451 (Version 3)
Quarter: 2022Q1

REPORT INFORMATION
  Report Type: Spontaneous
  Country: US (occurrence: US)
  Receive Date: 20211222
  Receipt Date: 20220124
  Transmission Date: 20220423
  Serious: Yes (Hospitalization, Other)
  Sender: FDA-Public Use
  Company Number: US-MLMSERVICE-20211207-3260580-1

PATIENT
  Age: 3 Decade
  Sex: Female

DRUGS (7)
  1. METHYLPREDNISOLONE [Suspect]
     Active Substance: METHYLPREDNISOLONE
     Indication: Encephalitis autoimmune
     Dosage: 1 GRAM
     Route: 042
  2. BLEOMYCIN [Concomitant]
     Active Substance: BLEOMYCIN SULFATE
     Indication: Encephalitis autoimmune
     Dosage: 90 INTERNATIONAL UNIT, CYCLICAL (ON HOSPITALISATION DAY 4, 30 UNITS ON DAYS 2, 9 AND 16)
     Route: 065
  3. BLEOMYCIN [Concomitant]
     Active Substance: BLEOMYCIN SULFATE
     Dosage: 30 UNITS (ON DAYS 2, 9 AND 16)
     Route: 065
  4. CISPLATIN [Concomitant]
     Active Substance: CISPLATIN
     Indication: Encephalitis autoimmune
     Dosage: 100 MILLIGRAM/SQ. METER, CYCLICAL (ON DAYS 1-5,  FOUR 21-DAY CYCLES)
     Route: 065
  5. CISPLATIN [Concomitant]
     Active Substance: CISPLATIN
     Dosage: 20 MILLIGRAM/SQ. METER, ONCE A DAY(ON DAYS 1?5)
     Route: 065
  6. ETOPOSIDE [Concomitant]
     Active Substance: ETOPOSIDE
     Indication: Encephalitis autoimmune
     Dosage: 500 ML/M2 CYCLICAL (HOSPITALISATION DAY 4, ON DAYS 1-5, FOUR 21-DAY CYCLES)
     Route: 065
  7. ETOPOSIDE [Concomitant]
     Active Substance: ETOPOSIDE
     Dosage: 100 MILLIGRAM/SQ. METER, ONCE A DAY (ON DAYS 1?5)
     Route: 065

REACTIONS (1)
  - Substance-induced psychotic disorder [Unknown]
